FAERS Safety Report 11781842 (Version 3)
Quarter: 2015Q4

REPORT INFORMATION
  Report Type: Spontaneous
  Country: US (occurrence: US)
  Receive Date: 20151126
  Receipt Date: 20151223
  Transmission Date: 20160305
  Serious: Yes (Death, Hospitalization)
  Sender: FDA-Public Use
  Company Number: US-009507513-1511USA013181

PATIENT
  Age: 73 Year
  Sex: Male

DRUGS (3)
  1. NOXAFIL [Suspect]
     Active Substance: POSACONAZOLE
     Indication: PULMONARY MYCOSIS
     Dosage: UNK
     Route: 048
     Dates: start: 201506
  2. ANTINEOPLASTIC (UNSPECIFIED) [Concomitant]
     Active Substance: UNSPECIFIED INGREDIENT
  3. HYDREA [Concomitant]
     Active Substance: HYDROXYUREA

REACTIONS (1)
  - Pneumonia fungal [Fatal]

NARRATIVE: CASE EVENT DATE: 201508
